FAERS Safety Report 8131374-6 (Version None)
Quarter: 2012Q1

REPORT INFORMATION
  Report Type: 
  Country: None (occurrence: None)
  Receive Date: 20120210
  Receipt Date: 20120210
  Transmission Date: 20120608
  Serious: Yes (Hospitalization)
  Sender: FDA-Public Use
  Company Number: None

PATIENT
  Age: 62 Year
  Sex: Male
  Weight: 102.7 kg

DRUGS (1)
  1. SULFAMETHOXAZOLE AND TRIMETHOPRIM [Suspect]
     Indication: RENAL FAILURE ACUTE
     Dosage: MG BID PO
     Route: 048
     Dates: start: 20111107, end: 20111117

REACTIONS (1)
  - RENAL FAILURE ACUTE [None]
